FAERS Safety Report 4918574-0 (Version None)
Quarter: 2006Q1

REPORT INFORMATION
  Report Type: 
  Country: None (occurrence: None)
  Receive Date: 20060221
  Receipt Date: 20060221
  Transmission Date: 20060701
  Serious: No
  Sender: FDA-Public Use
  Company Number: None

PATIENT
  Age: 49 Year
  Sex: Female
  Weight: 77.1115 kg

DRUGS (1)
  1. ZYCAM NASAL SPRAY [Suspect]
     Indication: UPPER RESPIRATORY TRACT INFECTION
     Dosage: ONLY USED IT THREE TIMES
     Dates: start: 20051214, end: 20051216

REACTIONS (2)
  - AGEUSIA [None]
  - ANOSMIA [None]
